FAERS Safety Report 12551416 (Version 2)
Quarter: 2016Q3

REPORT INFORMATION
  Report Type: Spontaneous
  Country: US (occurrence: US)
  Receive Date: 20160713
  Receipt Date: 20160715
  Transmission Date: 20161109
  Serious: No
  Sender: FDA-Public Use
  Company Number: US-TEVA-659467USA

PATIENT
  Age: 42 Year
  Sex: Female

DRUGS (5)
  1. ZECUITY [Suspect]
     Active Substance: SUMATRIPTAN SUCCINATE
     Indication: MIGRAINE
     Dosage: 6.5 MG/4 HOURS
     Route: 062
  2. MAXALT [Concomitant]
     Active Substance: RIZATRIPTAN BENZOATE
  3. TOPAMAX [Concomitant]
     Active Substance: TOPIRAMATE
  4. ALBUTEROL. [Concomitant]
     Active Substance: ALBUTEROL
  5. BOTOX [Concomitant]
     Active Substance: ONABOTULINUMTOXINA

REACTIONS (1)
  - Drug ineffective [Unknown]

NARRATIVE: CASE EVENT DATE: 201603
